FAERS Safety Report 10561425 (Version 1)
Quarter: 2014Q4

REPORT INFORMATION
  Report Type: Spontaneous
  Country: US (occurrence: US)
  Receive Date: 20141103
  Receipt Date: 20141103
  Transmission Date: 20150529
  Serious: No
  Sender: FDA-Public Use
  Company Number: US-BAUSCH-BL-2013-005890

PATIENT
  Age: 76 Year
  Sex: Female

DRUGS (4)
  1. TRAVATAN Z [Concomitant]
     Active Substance: TRAVOPROST
     Indication: GLAUCOMA
     Dosage: 1 DROP; AT BEDTIME; RIGHT EYE
     Route: 047
     Dates: start: 201307
  2. TRAVATAN Z [Concomitant]
     Active Substance: TRAVOPROST
     Dosage: 1 DROP; AT BEDTIME; LEFT EYE
     Route: 047
     Dates: start: 201307
  3. BEPREVE (BEPOTASTINE BESILATE OPHTHALMIC SOLUTION 1.5%) [Suspect]
     Active Substance: BEPOTASTINE\BEPOTASTINE BESILATE
     Dosage: 1 DROP; TWICE A DAY; LEFT EYE
     Route: 047
     Dates: start: 201309
  4. BEPREVE (BEPOTASTINE BESILATE OPHTHALMIC SOLUTION 1.5%) [Suspect]
     Active Substance: BEPOTASTINE\BEPOTASTINE BESILATE
     Indication: EYE PRURITUS
     Dosage: 1 DROP; TWICE A DAY; RIGHT EYE
     Route: 047
     Dates: start: 201309

REACTIONS (2)
  - Ocular hyperaemia [Recovered/Resolved]
  - Eye irritation [Recovered/Resolved]

NARRATIVE: CASE EVENT DATE: 201310
